FAERS Safety Report 22536386 (Version 3)
Quarter: 2023Q4

REPORT INFORMATION
  Report Type: Spontaneous
  Country: US (occurrence: US)
  Receive Date: 20230608
  Receipt Date: 20231107
  Transmission Date: 20240109
  Serious: Yes (Other)
  Sender: FDA-Public Use
  Company Number: US-JNJFOC-20230605425

PATIENT
  Sex: Male

DRUGS (4)
  1. TYLENOL REGULAR STRENGTH [Suspect]
     Active Substance: ACETAMINOPHEN
     Indication: Headache
     Dosage: THE PATIENTS MOTHER RECEIVED TYLENOL REGULAR STRENGTH TABLETS 325 MG (TABLET, ORAL, AND BATCH NUMBE
     Route: 064
     Dates: start: 201401, end: 201410
  2. TYLENOL REGULAR STRENGTH [Suspect]
     Active Substance: ACETAMINOPHEN
     Indication: Back pain
  3. AZITHROMYCIN [Concomitant]
     Active Substance: AZITHROMYCIN
     Indication: Product used for unknown indication
     Route: 064
  4. IRON [Concomitant]
     Active Substance: IRON
     Indication: Product used for unknown indication
     Route: 064

REACTIONS (2)
  - Autism spectrum disorder [Unknown]
  - Foetal exposure during pregnancy [Unknown]

NARRATIVE: CASE EVENT DATE: 20140101
